FAERS Safety Report 6467388-1 (Version None)
Quarter: 2009Q4

REPORT INFORMATION
  Report Type: 
  Country: None (occurrence: None)
  Receive Date: 20091202
  Receipt Date: 20091124
  Transmission Date: 20100525
  Serious: Yes (Death, Life-Threatening, Hospitalization)
  Sender: FDA-Public Use
  Company Number: A0832024A

PATIENT

DRUGS (1)
  1. ARIXTRA [Suspect]
     Indication: DEEP VEIN THROMBOSIS
     Dosage: 7.5MG PER DAY
     Route: 058

REACTIONS (4)
  - DEATH [None]
  - INTRA-ABDOMINAL HAEMORRHAGE [None]
  - MECHANICAL VENTILATION [None]
  - RETROPERITONEAL HAEMORRHAGE [None]
